FAERS Safety Report 5615047-7 (Version None)
Quarter: 2008Q1

REPORT INFORMATION
  Report Type: 
  Country: None (occurrence: None)
  Receive Date: 20080205
  Receipt Date: 20080205
  Transmission Date: 20080703
  Serious: Yes (Other)
  Sender: FDA-Public Use
  Company Number: None

PATIENT
  Age: 68 Year
  Sex: Female
  Weight: 67.1324 kg

DRUGS (3)
  1. METOPROLOL TARTRATE [Suspect]
     Indication: BLOOD PRESSURE
     Dosage: 50 MG  DAILY PO
     Route: 048
     Dates: start: 20071226, end: 20080124
  2. METOPROLOL TARTRATE [Suspect]
     Indication: HEART RATE IRREGULAR
     Dosage: 50 MG  DAILY PO
     Route: 048
     Dates: start: 20071226, end: 20080124
  3. TOPROL-XL [Suspect]

REACTIONS (5)
  - BLOOD PRESSURE FLUCTUATION [None]
  - BLOOD PRESSURE INCREASED [None]
  - HEART RATE IRREGULAR [None]
  - PHARMACEUTICAL PRODUCT COMPLAINT [None]
  - PHOTOPHOBIA [None]
